FAERS Safety Report 5964668-0 (Version None)
Quarter: 2008Q4

REPORT INFORMATION
  Report Type: 
  Country: None (occurrence: None)
  Receive Date: 20081125
  Receipt Date: 20081113
  Transmission Date: 20090506
  Serious: No
  Sender: FDA-Public Use
  Company Number: US-BAYER-200837759NA

PATIENT
  Sex: Female

DRUGS (2)
  1. CLIMARA PRO [Suspect]
     Indication: HOT FLUSH
     Route: 062
     Dates: start: 20080901
  2. TRANQUILIZER NOS [Concomitant]
     Indication: PANIC ATTACK

REACTIONS (2)
  - DIZZINESS [None]
  - VERTIGO [None]
